FAERS Safety Report 11396675 (Version 1)
Quarter: 2015Q3

REPORT INFORMATION
  Report Type: Spontaneous
  Country: US (occurrence: US)
  Receive Date: 20150819
  Receipt Date: 20150819
  Transmission Date: 20151125
  Serious: No
  Sender: FDA-Public Use
  Company Number: US-GLAXOSMITHKLINE-US2015GSK110065

PATIENT
  Sex: Female

DRUGS (1)
  1. TYKERB [Suspect]
     Active Substance: LAPATINIB DITOSYLATE
     Indication: PRODUCT USED FOR UNKNOWN INDICATION
     Dosage: 750 MG, CYC D1-D21 Q28D
     Route: 048

REACTIONS (4)
  - Nausea [Unknown]
  - Drug dose omission [Unknown]
  - Vomiting [Unknown]
  - Fatigue [Unknown]
